FAERS Safety Report 15116768 (Version 1)
Quarter: 2018Q3

REPORT INFORMATION
  Report Type: Spontaneous
  Country: US (occurrence: US)
  Receive Date: 20180706
  Receipt Date: 20180706
  Transmission Date: 20181010
  Serious: No
  Sender: FDA-Public Use
  Company Number: US-TEVA-2018-US-922780

PATIENT
  Sex: Male

DRUGS (1)
  1. OLOPATADINE. [Suspect]
     Active Substance: OLOPATADINE

REACTIONS (1)
  - Eye injury [Recovered/Resolved]
